FAERS Safety Report 8021101-5 (Version None)
Quarter: 2011Q4

REPORT INFORMATION
  Report Type: 
  Country: None (occurrence: None)
  Receive Date: 20111223
  Receipt Date: 20111215
  Transmission Date: 20120403
  Serious: Yes (Other)
  Sender: FDA-Public Use
  Company Number: 2011030543

PATIENT
  Age: 62 Year
  Sex: Male

DRUGS (1)
  1. INTRAVENOUS IMMUNOGLOBULIN (IVIG) (IMMUNE GLOBULIN INTRAVENOUS (HUMAN) [Suspect]
     Dosage: INTRAVENOUS (NOT OTHERWISE SPECIFIED)
     Route: 042

REACTIONS (4)
  - ECZEMA [None]
  - ALOPECIA [None]
  - BLISTER [None]
  - DERMATITIS EXFOLIATIVE [None]
